FAERS Safety Report 8317289-9 (Version None)
Quarter: 2012Q2

REPORT INFORMATION
  Report Type: 
  Country: None (occurrence: None)
  Receive Date: 20120427
  Receipt Date: 20120420
  Transmission Date: 20120825
  Serious: Yes (Other)
  Sender: FDA-Public Use
  Company Number: GB-UCBSA-053040

PATIENT
  Sex: Female

DRUGS (5)
  1. CARBAMAZEPINE [Concomitant]
     Indication: PARTIAL SEIZURES
     Dosage: STARTED BEFORE 2008
     Route: 048
  2. TOPIRAMATE [Concomitant]
     Indication: PARTIAL SEIZURES
     Route: 048
     Dates: start: 20110512
  3. CLONAZEPAM [Concomitant]
     Indication: PARTIAL SEIZURES
     Dosage: BEFORE 2008
     Route: 048
  4. LACOSAMIDE [Suspect]
     Indication: PARTIAL SEIZURES
     Route: 048
     Dates: start: 20111108, end: 20120416
  5. CLOBAZAM [Concomitant]
     Indication: PARTIAL SEIZURES
     Dosage: BEFORE 2008
     Route: 048

REACTIONS (2)
  - DRUG INEFFECTIVE [None]
  - PARTIAL SEIZURES [None]
